FAERS Safety Report 7007583-6 (Version None)
Quarter: 2010Q3

REPORT INFORMATION
  Report Type: 
  Country: None (occurrence: None)
  Receive Date: 20100917
  Receipt Date: 20100906
  Transmission Date: 20110219
  Serious: Yes (Other)
  Sender: FDA-Public Use
  Company Number: 2010112163

PATIENT
  Age: 62 Year
  Sex: Female

DRUGS (1)
  1. FRAGMIN [Suspect]
     Dosage: 12500 IU

REACTIONS (1)
  - HEART RATE INCREASED [None]
